FAERS Safety Report 9036044 (Version 1)
Quarter: 2013Q1

REPORT INFORMATION
  Report Type: Report from Study
  Country: US (occurrence: US)
  Receive Date: 20130129
  Receipt Date: 20130129
  Transmission Date: 20140127
  Serious: No
  Sender: FDA-Public Use
  Company Number: US-ABBOTT-12P-163-0912771-00

PATIENT
  Sex: Female
  Weight: 94.43 kg

DRUGS (11)
  1. HUMIRA 40 MG/0.8 ML PEN [Suspect]
     Indication: RHEUMATOID ARTHRITIS
     Route: 058
     Dates: start: 20120229
  2. LEFLUNOMIDE [Concomitant]
     Indication: RHEUMATOID ARTHRITIS
  3. EXALGO [Concomitant]
     Indication: PAIN
  4. LEUFLEUDOMIDE [Concomitant]
     Indication: RHEUMATOID ARTHRITIS
  5. GABAPENTIN [Concomitant]
     Indication: RHEUMATOID ARTHRITIS
  6. CYMBALTA [Concomitant]
     Indication: PAIN
  7. OXYCODONE [Concomitant]
     Indication: RESTLESS LEGS SYNDROME
  8. XENAFLEX [Concomitant]
     Indication: MUSCLE SPASMS
  9. CLONAZAPAM [Concomitant]
     Indication: RESTLESS LEGS SYNDROME
  10. AMBIEN [Concomitant]
     Indication: SLEEP DISORDER THERAPY
  11. PROMETHAZINE [Concomitant]
     Indication: NAUSEA

REACTIONS (5)
  - Hypoaesthesia [Not Recovered/Not Resolved]
  - Paraesthesia [Not Recovered/Not Resolved]
  - Musculoskeletal stiffness [Not Recovered/Not Resolved]
  - Weight increased [Not Recovered/Not Resolved]
  - Muscular weakness [Not Recovered/Not Resolved]
